FAERS Safety Report 17628663 (Version 1)
Quarter: 2020Q2

REPORT INFORMATION
  Report Type: Spontaneous
  Country: US (occurrence: US)
  Receive Date: 20200406
  Receipt Date: 20200406
  Transmission Date: 20200713
  Serious: No
  Sender: FDA-Public Use
  Company Number: NVSC2020US092623

PATIENT
  Age: 5 Year
  Sex: Female

DRUGS (1)
  1. FLUTICASONE. [Suspect]
     Active Substance: FLUTICASONE
     Indication: CHRONIC SPONTANEOUS URTICARIA
     Dosage: UNK
     Route: 065

REACTIONS (1)
  - Tic [Unknown]
